FAERS Safety Report 8079142-8 (Version None)
Quarter: 2012Q1

REPORT INFORMATION
  Report Type: 
  Country: None (occurrence: None)
  Receive Date: 20120128
  Receipt Date: 20110717
  Transmission Date: 20120608
  Serious: No
  Sender: FDA-Public Use
  Company Number: US-ABBOTT-11P-163-0839830-00

PATIENT
  Age: 62 Year
  Sex: Female

DRUGS (8)
  1. FENOFIBRATE [Concomitant]
     Indication: PRODUCT USED FOR UNKNOWN INDICATION
     Dosage: DAILY
  2. LANTUS [Concomitant]
     Indication: DIABETES MELLITUS
     Dosage: 40 UNITS AT BEDTIME, 15 UNITS IN MORNING
  3. METFFORMIN HYDROCHLORIDE [Concomitant]
     Indication: DIABETES MELLITUS
  4. LEXAPRO [Concomitant]
     Indication: NERVOUS SYSTEM DISORDER
     Dosage: DAILY FOR THE PAST 2 YEARS
  5. HUMIRA [Suspect]
     Indication: PSORIASIS
     Dates: start: 20110301
  6. HUMALOG R [Concomitant]
     Indication: DIABETES MELLITUS
     Dosage: IN MORNING
  7. ASPIRIN [Concomitant]
     Indication: PROPHYLAXIS
     Dosage: DAILY
  8. LOVASTATIN [Concomitant]
     Indication: BLOOD CHOLESTEROL INCREASED
     Dosage: DAILY

REACTIONS (1)
  - PRURITUS [None]
